FAERS Safety Report 21053276 (Version 6)
Quarter: 2022Q3

REPORT INFORMATION
  Report Type: Report from Study
  Country: TW (occurrence: TW)
  Receive Date: 20220707
  Receipt Date: 20220916
  Transmission Date: 20221026
  Serious: Yes (Hospitalization)
  Sender: FDA-Public Use
  Company Number: TW-DSRSG-DS8201AU206_88042001_000002

PATIENT
  Age: 7 Decade
  Sex: Female
  Weight: 58.7 kg

DRUGS (35)
  1. FAM-TRASTUZUMAB DERUXTECAN-NXKI [Suspect]
     Active Substance: FAM-TRASTUZUMAB DERUXTECAN-NXKI
     Indication: HER2 mutant non-small cell lung cancer
     Dosage: 5.4 MG/KG, ONCE EVERY 3 WK
     Route: 042
     Dates: start: 20210908, end: 20210908
  2. FAM-TRASTUZUMAB DERUXTECAN-NXKI [Suspect]
     Active Substance: FAM-TRASTUZUMAB DERUXTECAN-NXKI
     Dosage: 5.4 MG/KG, ONCE EVERY 3 WK
     Route: 042
     Dates: start: 20210930, end: 20210930
  3. FAM-TRASTUZUMAB DERUXTECAN-NXKI [Suspect]
     Active Substance: FAM-TRASTUZUMAB DERUXTECAN-NXKI
     Dosage: 5.4 MG/KG, ONCE EVERY 3 WK
     Route: 042
     Dates: start: 20211021, end: 20211021
  4. FAM-TRASTUZUMAB DERUXTECAN-NXKI [Suspect]
     Active Substance: FAM-TRASTUZUMAB DERUXTECAN-NXKI
     Dosage: 5.4 MG/KG, ONCE EVERY 3 WK
     Route: 042
     Dates: start: 20211111, end: 20211111
  5. FAM-TRASTUZUMAB DERUXTECAN-NXKI [Suspect]
     Active Substance: FAM-TRASTUZUMAB DERUXTECAN-NXKI
     Dosage: 5.4 MG/KG, ONCE EVERY 3 WK
     Route: 042
     Dates: start: 20211202, end: 20211202
  6. FAM-TRASTUZUMAB DERUXTECAN-NXKI [Suspect]
     Active Substance: FAM-TRASTUZUMAB DERUXTECAN-NXKI
     Dosage: 5.4 MG/KG, ONCE EVERY 3 WK
     Route: 042
     Dates: start: 20211223, end: 20211223
  7. FAM-TRASTUZUMAB DERUXTECAN-NXKI [Suspect]
     Active Substance: FAM-TRASTUZUMAB DERUXTECAN-NXKI
     Dosage: 5.4 MG/KG, ONCE EVERY 3 WK
     Route: 042
     Dates: start: 20220118, end: 20220118
  8. FAM-TRASTUZUMAB DERUXTECAN-NXKI [Suspect]
     Active Substance: FAM-TRASTUZUMAB DERUXTECAN-NXKI
     Dosage: 5.4 MG/KG, ONCE EVERY 3 WK
     Route: 042
     Dates: start: 20220208, end: 20220208
  9. FAM-TRASTUZUMAB DERUXTECAN-NXKI [Suspect]
     Active Substance: FAM-TRASTUZUMAB DERUXTECAN-NXKI
     Dosage: 5.4 MG/KG, ONCE EVERY 3 WK
     Route: 042
     Dates: start: 20220308, end: 20220308
  10. FAM-TRASTUZUMAB DERUXTECAN-NXKI [Suspect]
     Active Substance: FAM-TRASTUZUMAB DERUXTECAN-NXKI
     Dosage: 5.4 MG/KG, ONCE EVERY 3 WK
     Route: 042
     Dates: start: 20220331, end: 20220331
  11. FAM-TRASTUZUMAB DERUXTECAN-NXKI [Suspect]
     Active Substance: FAM-TRASTUZUMAB DERUXTECAN-NXKI
     Dosage: 4.4 MG/KG, ONCE EVERY 3 WK
     Route: 042
     Dates: start: 20220428, end: 20220428
  12. FAM-TRASTUZUMAB DERUXTECAN-NXKI [Suspect]
     Active Substance: FAM-TRASTUZUMAB DERUXTECAN-NXKI
     Dosage: 4.4 MG/KG, ONCE EVERY 3 WK
     Route: 042
     Dates: start: 20220519, end: 20220519
  13. FAM-TRASTUZUMAB DERUXTECAN-NXKI [Suspect]
     Active Substance: FAM-TRASTUZUMAB DERUXTECAN-NXKI
     Dosage: 4.4 MG/KG, ONCE EVERY 3 WK
     Route: 042
     Dates: start: 20220614, end: 20220614
  14. PIRENOXINE [Concomitant]
     Active Substance: PIRENOXINE
     Indication: Cataract
     Dosage: 1 DROP
     Route: 050
     Dates: start: 20211122
  15. KEPPRA [Concomitant]
     Active Substance: LEVETIRACETAM
     Dosage: 1 TABLET
     Route: 048
     Dates: start: 20211202
  16. KEPPRA [Concomitant]
     Active Substance: LEVETIRACETAM
     Dosage: 1 TABLET
     Route: 048
     Dates: start: 20220607, end: 20220705
  17. VALPROATE SODIUM [Concomitant]
     Active Substance: VALPROATE SODIUM
     Dosage: 1 TABLET
     Route: 048
     Dates: start: 20220301, end: 20220606
  18. VALPROATE SODIUM [Concomitant]
     Active Substance: VALPROATE SODIUM
     Dosage: 1 TABLET
     Route: 048
     Dates: start: 20220607
  19. CALCIUM CARBONATE [Concomitant]
     Active Substance: CALCIUM CARBONATE
     Dosage: 1 TABLET
     Route: 048
     Dates: start: 20220308
  20. CHLORPHENIRAMINE [Concomitant]
     Active Substance: CHLORPHENIRAMINE
     Dosage: 1 AMPULE
     Route: 042
     Dates: start: 20220607, end: 20220607
  21. SOLU-CORTEF [Concomitant]
     Active Substance: HYDROCORTISONE SODIUM SUCCINATE
     Dosage: 2 VIAL
     Route: 042
     Dates: start: 20220607, end: 20220607
  22. HUMAN RED BLOOD CELL [Concomitant]
     Active Substance: HUMAN RED BLOOD CELL
     Dosage: 2 OTHER
     Route: 042
     Dates: start: 20220607, end: 20220607
  23. HUMAN RED BLOOD CELL [Concomitant]
     Active Substance: HUMAN RED BLOOD CELL
     Dosage: 2 OTHER
     Route: 042
     Dates: start: 20220617, end: 20220617
  24. B.M [Concomitant]
     Dosage: 5 OTHER
     Route: 048
     Dates: start: 20220614
  25. TRANSAMIN [Concomitant]
     Active Substance: TRANEXAMIC ACID
     Dosage: 1 AMPULE
     Route: 042
     Dates: start: 20220617, end: 20220618
  26. SOLU-CORTEF [Concomitant]
     Active Substance: HYDROCORTISONE SODIUM SUCCINATE
     Dosage: 100 OTHER
     Route: 042
     Dates: start: 20220617, end: 20220617
  27. CHLORPHENIRAMINE [Concomitant]
     Active Substance: CHLORPHENIRAMINE
     Dosage: 5 OTHER
     Route: 042
     Dates: start: 20220617, end: 20220617
  28. SINGLE DONOR [Concomitant]
     Dosage: 2 OTHER
     Route: 042
     Dates: start: 20220617, end: 20220617
  29. PANTOPRAZOLE [Concomitant]
     Active Substance: PANTOPRAZOLE
     Dosage: 40 OTHER
     Route: 042
     Dates: start: 20220617, end: 20220617
  30. SUZOLE [Concomitant]
     Indication: Conjunctivitis
     Dosage: 1 DROP
     Route: 050
     Dates: start: 20210818
  31. PRIMPERAN [Concomitant]
     Active Substance: METOCLOPRAMIDE HYDROCHLORIDE
     Dosage: 10 OTHER
     Route: 042
     Dates: start: 20220617, end: 20220617
  32. MORIAMIN SN [Concomitant]
     Dosage: 1 BOTTLE
     Route: 042
     Dates: start: 20220617, end: 20220617
  33. CARBOMER [Concomitant]
     Active Substance: CARBOMER
     Indication: Dry eye
     Dosage: 1 DROP
     Route: 050
     Dates: start: 20210818
  34. FOXONE [Concomitant]
     Indication: Conjunctivitis
     Dosage: 1 DROP
     Route: 050
     Dates: start: 20210818
  35. MEGEST [MEGESTROL ACETATE] [Concomitant]
     Dosage: 10 OTHER
     Route: 048
     Dates: start: 20220428, end: 20220519

REACTIONS (2)
  - Intracranial tumour haemorrhage [Recovered/Resolved]
  - Thrombocytopenia [Recovered/Resolved]

NARRATIVE: CASE EVENT DATE: 20220617
